FAERS Safety Report 10068550 (Version 2)
Quarter: 2014Q2

REPORT INFORMATION
  Report Type: Report from Study
  Country: US (occurrence: US)
  Receive Date: 20140409
  Receipt Date: 20140409
  Transmission Date: 20141212
  Serious: Yes (Hospitalization)
  Sender: FDA-Public Use
  Company Number: US-BRISTOL-MYERS SQUIBB COMPANY-19198076

PATIENT
  Age: 60 Year
  Sex: Male

DRUGS (19)
  1. BLINDED: IPILIMUMAB [Suspect]
     Indication: SMALL CELL LUNG CANCER
  2. ETOPOSIDE [Suspect]
     Indication: SMALL CELL LUNG CANCER
  3. CARBOPLATIN [Suspect]
     Indication: SMALL CELL LUNG CANCER
  4. CISPLATIN [Suspect]
     Indication: SMALL CELL LUNG CANCER
  5. BLINDED: PLACEBO [Suspect]
     Indication: SMALL CELL LUNG CANCER
  6. ALBUTEROL [Concomitant]
     Dates: start: 2011
  7. SALMETEROL + FLUTICASONE [Concomitant]
     Dates: start: 2003
  8. FUROSEMIDE [Concomitant]
     Dates: start: 20130806
  9. ACETAMINOPHEN + HYDROCODONE [Concomitant]
     Dates: start: 20130705
  10. HYDROCHLOROTHIAZIDE [Concomitant]
     Dates: start: 201305
  11. NEBIVOLOL [Concomitant]
     Dates: start: 1999
  12. PANTOPRAZOLE [Concomitant]
     Dates: start: 2012
  13. TESTIM [Concomitant]
     Dates: start: 2003
  14. ASPIRIN [Concomitant]
     Dates: start: 2012
  15. CRESTOR [Concomitant]
     Dates: start: 2012
  16. VENTOLIN [Concomitant]
     Dates: start: 2011
  17. FENOFIBRATE [Concomitant]
     Dates: start: 2011
  18. ADVAIR [Concomitant]
     Dates: start: 2003
  19. BYSTOLIC [Concomitant]
     Dates: start: 20130805

REACTIONS (2)
  - Abdominal pain [Recovered/Resolved]
  - Peritoneal haemorrhage [Unknown]
